FAERS Safety Report 10163599 (Version 2)
Quarter: 2014Q2

REPORT INFORMATION
  Report Type: Spontaneous
  Country: US (occurrence: US)
  Receive Date: 20140509
  Receipt Date: 20140509
  Transmission Date: 20141212
  Serious: No
  Sender: FDA-Public Use
  Company Number: US-BAUSCH-BL-2014-000313

PATIENT
  Age: 40 Year
  Sex: Female

DRUGS (1)
  1. OFLOXACIN OTIC SOLUTION 0.3% [Suspect]
     Indication: EAR INFECTION
     Route: 001
     Dates: start: 20131224, end: 20131225

REACTIONS (1)
  - Phlebitis superficial [Recovering/Resolving]
